FAERS Safety Report 21227805 (Version 1)
Quarter: 2022Q3

REPORT INFORMATION
  Report Type: Other
  Country: AE (occurrence: None)
  Receive Date: 20220818
  Receipt Date: 20220818
  Transmission Date: 20221026
  Serious: Yes (Other)
  Sender: FDA-Public Use
  Company Number: AE-ROCHE-3158490

PATIENT
  Sex: Male

DRUGS (1)
  1. ALECENSA [Suspect]
     Active Substance: ALECTINIB HYDROCHLORIDE
     Indication: Product used for unknown indication
     Route: 065

REACTIONS (10)
  - Pulmonary mass [Unknown]
  - Blood urea decreased [Unknown]
  - Blood bilirubin increased [Unknown]
  - Red blood cell count decreased [Unknown]
  - Haemoglobin decreased [Unknown]
  - Haematocrit decreased [Unknown]
  - Vitamin B12 increased [Unknown]
  - Pleural thickening [Unknown]
  - Oesophageal dilatation [Unknown]
  - Oesophageal dilatation [Unknown]
